FAERS Safety Report 24223535 (Version 1)
Quarter: 2024Q3

REPORT INFORMATION
  Report Type: Spontaneous
  Country: US (occurrence: None)
  Receive Date: 20240817
  Receipt Date: 20240817
  Transmission Date: 20241017
  Serious: Yes (Hospitalization)
  Sender: Public
  Company Number: None

PATIENT
  Age: 72 Year
  Sex: Male
  Weight: 95.6 kg

DRUGS (3)
  1. FLUOROURACIL [Suspect]
     Active Substance: FLUOROURACIL
  2. LEUCOVORIN CALCIUM [Concomitant]
  3. ELOXATIN [Concomitant]
     Active Substance: OXALIPLATIN

REACTIONS (10)
  - Hiccups [None]
  - Aggression [None]
  - Vomiting [None]
  - Chest pain [None]
  - Dyspnoea [None]
  - Haemoglobin decreased [None]
  - Blood sodium decreased [None]
  - Troponin increased [None]
  - Blood alkaline phosphatase increased [None]
  - Aspartate aminotransferase increased [None]

NARRATIVE: CASE EVENT DATE: 20240626
